FAERS Safety Report 8398963-5 (Version None)
Quarter: 2012Q2

REPORT INFORMATION
  Report Type: 
  Country: None (occurrence: None)
  Receive Date: 20120531
  Receipt Date: 20120524
  Transmission Date: 20120825
  Serious: Yes (Other)
  Sender: FDA-Public Use
  Company Number: US-TEVA-337780USA

PATIENT
  Age: 68 Year
  Sex: Male

DRUGS (13)
  1. RAMIPRIL [Concomitant]
  2. PREGABALIN [Concomitant]
  3. AZILECT [Suspect]
     Route: 048
  4. GLIPIZIDE [Concomitant]
  5. LOVAZA [Concomitant]
  6. TAMSULOSIN HCL [Concomitant]
  7. PRAMIPEXOLE DIHYDROCHLORIDE [Interacting]
  8. LANSOPRAZOLE [Concomitant]
  9. PRAMIPEXOLE DIHYDROCHLORIDE [Concomitant]
  10. JANUVIC [Concomitant]
  11. METFORMIN HCL [Concomitant]
  12. LEVOTHYROXINE SODIUM [Concomitant]
  13. AMANTADINE HCL [Concomitant]

REACTIONS (2)
  - SEROTONIN SYNDROME [None]
  - DRUG INTERACTION [None]
